FAERS Safety Report 9723594 (Version 1)
Quarter: 2013Q4

REPORT INFORMATION
  Report Type: Spontaneous
  Country: US (occurrence: US)
  Receive Date: 20131202
  Receipt Date: 20131202
  Transmission Date: 20140711
  Serious: Yes (Other)
  Sender: FDA-Public Use
  Company Number: US-BAYER-2013-143094

PATIENT
  Age: 45 Year
  Sex: Female

DRUGS (1)
  1. CIPRO [Suspect]
     Indication: SKIN INFECTION
     Dosage: UNK
     Dates: start: 201305

REACTIONS (5)
  - Tendon rupture [None]
  - Tendon disorder [None]
  - Gait disturbance [None]
  - Injection site pain [None]
  - Hyperhidrosis [None]
